FAERS Safety Report 7857727 (Version 2)
Quarter: 2013Q2

REPORT INFORMATION
  Report Type: Spontaneous
  Country: US (occurrence: None)
  Receive Date: 20110223
  Receipt Date: 20120914
  Transmission Date: 20140414
  Serious: Yes (Hospitalization, Other)
  Sender: FDA-Public Use
  Company Number: JPI-P-013838

PATIENT
  Age: 77 Year
  Sex: Male
  Weight: 86.18 kg

DRUGS (1)
  1. XYREM [Suspect]
     Indication: NARCOLEPSY
     Route: 048
     Dates: start: 20060126

REACTIONS (1)
  - NERVE COMPRESSION [None]
